FAERS Safety Report 8227678-9 (Version None)
Quarter: 2012Q1

REPORT INFORMATION
  Report Type: 
  Country: None (occurrence: None)
  Receive Date: 20120322
  Receipt Date: 20120319
  Transmission Date: 20120608
  Serious: Yes (Hospitalization)
  Sender: FDA-Public Use
  Company Number: US-PFIZER INC-2012071702

PATIENT
  Sex: Female
  Weight: 65.7 kg

DRUGS (4)
  1. IBUPROFEN (ADVIL) [Suspect]
     Indication: ARTHRITIS
     Dosage: UNK, AS NEEDED
     Route: 048
     Dates: end: 20111101
  2. CARDIZEM [Concomitant]
     Indication: HYPERTENSION
     Dosage: UNK, 1X/DAY
  3. ATENOLOL [Concomitant]
     Indication: HYPERTENSION
     Dosage: 25 MG, 1X/DAY
  4. CELEBREX [Suspect]
     Indication: ARTHRITIS
     Dosage: 200 MG, UNK
     Route: 048
     Dates: start: 20120201

REACTIONS (4)
  - HYPERSENSITIVITY [None]
  - PAIN [None]
  - RENAL INJURY [None]
  - GASTRIC ULCER [None]
